FAERS Safety Report 5508783-4 (Version None)
Quarter: 2007Q4

REPORT INFORMATION
  Report Type: 
  Country: None (occurrence: None)
  Receive Date: 20071107
  Receipt Date: 20071029
  Transmission Date: 20080405
  Serious: Yes (Hospitalization)
  Sender: FDA-Public Use
  Company Number: B0493223A

PATIENT
  Age: 86 Year
  Sex: Female

DRUGS (6)
  1. ARIXTRA [Suspect]
     Indication: PHLEBITIS
     Dosage: 1INJ PER DAY
     Route: 058
     Dates: start: 20070601, end: 20070628
  2. GABACET [Concomitant]
     Dosage: 1UNIT TWICE PER DAY
     Route: 048
     Dates: start: 20050601
  3. SERMION [Concomitant]
     Dosage: 2UNIT PER DAY
     Route: 048
  4. VASTAREL [Concomitant]
     Dosage: 20MG TWICE PER DAY
     Route: 048
  5. SERC [Concomitant]
     Dosage: 1UNIT THREE TIMES PER DAY
     Route: 048
  6. DEBRIDAT [Concomitant]
     Dosage: 1UNIT TWICE PER DAY
     Route: 048
     Dates: start: 20070501

REACTIONS (7)
  - CEREBRAL HAEMORRHAGE [None]
  - FALL [None]
  - HEADACHE [None]
  - NAUSEA [None]
  - SUBDURAL HAEMATOMA [None]
  - TINNITUS [None]
  - VOMITING [None]
